FAERS Safety Report 21591669 (Version 1)
Quarter: 2022Q4

REPORT INFORMATION
  Report Type: Spontaneous
  Country: AU (occurrence: AU)
  Receive Date: 20221114
  Receipt Date: 20221114
  Transmission Date: 20230112
  Serious: Yes (Hospitalization, Other)
  Sender: FDA-Public Use
  Company Number: None

PATIENT

DRUGS (1)
  1. IBUPROFEN [Suspect]
     Active Substance: IBUPROFEN
     Indication: Product used for unknown indication
     Dosage: UNK
     Route: 048

REACTIONS (8)
  - Blood urea increased [Recovered/Resolved]
  - Gastritis haemorrhagic [Recovered/Resolved]
  - Haemoglobin decreased [Recovered/Resolved]
  - Inflammation [Recovered/Resolved]
  - Influenza [Recovered/Resolved]
  - Malaise [Recovered/Resolved]
  - Melaena [Recovered/Resolved]
  - Tachycardia [Recovered/Resolved]
